FAERS Safety Report 12076187 (Version 2)
Quarter: 2016Q1

REPORT INFORMATION
  Report Type: Spontaneous
  Country: US (occurrence: US)
  Receive Date: 20160215
  Receipt Date: 20160309
  Transmission Date: 20160526
  Serious: Yes (Hospitalization)
  Sender: FDA-Public Use
  Company Number: US-BEH-2016058580

PATIENT
  Sex: Female
  Weight: 94 kg

DRUGS (35)
  1. COUMADIN [Concomitant]
     Active Substance: WARFARIN SODIUM
  2. SPIRIVA [Concomitant]
     Active Substance: TIOTROPIUM BROMIDE MONOHYDRATE
  3. NORCO [Concomitant]
     Active Substance: ACETAMINOPHEN\HYDROCODONE BITARTRATE
  4. DOXYCYCLINE. [Concomitant]
     Active Substance: DOXYCYCLINE
  5. ADVAIR HFA [Concomitant]
     Active Substance: FLUTICASONE PROPIONATE\SALMETEROL XINAFOATE
  6. NYSTATIN. [Concomitant]
     Active Substance: NYSTATIN
  7. MIRALAX [Concomitant]
     Active Substance: POLYETHYLENE GLYCOL 3350
  8. BETAPACE [Concomitant]
     Active Substance: SOTALOL HYDROCHLORIDE
  9. ATROVENT [Concomitant]
     Active Substance: IPRATROPIUM BROMIDE
  10. RESTASIS [Concomitant]
     Active Substance: CYCLOSPORINE
  11. LYRICA [Concomitant]
     Active Substance: PREGABALIN
  12. VENTOLIN [Concomitant]
     Active Substance: ALBUTEROL SULFATE
  13. ACETAMINOPHEN. [Concomitant]
     Active Substance: ACETAMINOPHEN
  14. LIDOCAINE. [Concomitant]
     Active Substance: LIDOCAINE
  15. LOSARTAN. [Concomitant]
     Active Substance: LOSARTAN
  16. ALBUTEROL. [Concomitant]
     Active Substance: ALBUTEROL
  17. METFORMIN [Concomitant]
     Active Substance: METFORMIN HYDROCHLORIDE
  18. BIOTENE (PASTE) [Concomitant]
     Active Substance: SODIUM MONOFLUOROPHOSPHATE
  19. SYMBICORT [Concomitant]
     Active Substance: BUDESONIDE\FORMOTEROL FUMARATE DIHYDRATE
  20. CARDIZEM CD [Concomitant]
     Active Substance: DILTIAZEM HYDROCHLORIDE
  21. AMITRIPTYLINE [Concomitant]
     Active Substance: AMITRIPTYLINE
  22. HIZENTRA [Suspect]
     Active Substance: HUMAN IMMUNOGLOBULIN G
     Indication: IMMUNODEFICIENCY COMMON VARIABLE
     Route: 058
  23. HUMALOG [Concomitant]
     Active Substance: INSULIN LISPRO
  24. OXYGEN. [Concomitant]
     Active Substance: OXYGEN
  25. LASIX [Concomitant]
     Active Substance: FUROSEMIDE
  26. EPIPEN [Concomitant]
     Active Substance: EPINEPHRINE
  27. LEVOTHYROXINE. [Concomitant]
     Active Substance: LEVOTHYROXINE
  28. SINGULAIR [Concomitant]
     Active Substance: MONTELUKAST SODIUM
  29. PRAVASTATIN [Concomitant]
     Active Substance: PRAVASTATIN\PRAVASTATIN SODIUM
  30. HIZENTRA [Suspect]
     Active Substance: HUMAN IMMUNOGLOBULIN G
     Dosage: 10 GM 50 ML VIALS
     Route: 058
  31. AZELASTINE [Concomitant]
     Active Substance: AZELASTINE
  32. OMEPRAZOLE. [Concomitant]
     Active Substance: OMEPRAZOLE
  33. DIPHENHYDRAMINE. [Concomitant]
     Active Substance: DIPHENHYDRAMINE
  34. SULFATE [Concomitant]
  35. SINGULAIR [Concomitant]
     Active Substance: MONTELUKAST SODIUM

REACTIONS (2)
  - Renal failure [Unknown]
  - Pneumonia pseudomonal [Unknown]
